FAERS Safety Report 13053206 (Version 1)
Quarter: 2016Q4

REPORT INFORMATION
  Report Type: Spontaneous
  Country: US (occurrence: US)
  Receive Date: 20161221
  Receipt Date: 20161221
  Transmission Date: 20170207
  Serious: Yes (Hospitalization)
  Sender: FDA-Public Use
  Company Number: None

PATIENT
  Age: 9 Year
  Sex: Male
  Weight: 35 kg

DRUGS (5)
  1. METHOTREXATE. [Suspect]
     Active Substance: METHOTREXATE
     Dates: end: 20161107
  2. VINCRISTINE SULFATE. [Suspect]
     Active Substance: VINCRISTINE SULFATE
     Dates: end: 20161107
  3. DEXAMETHASONE. [Suspect]
     Active Substance: DEXAMETHASONE
     Dates: end: 20161111
  4. CYTARABINE. [Suspect]
     Active Substance: CYTARABINE
     Dosage: 26-400MG
     Dates: end: 20161115
  5. ERWINIA ASPARAGINASE [Suspect]
     Active Substance: ASPARAGINASE ERWINIA CHRYSANTHEMI
     Dates: end: 20161117

REACTIONS (6)
  - Pleural effusion [None]
  - Streptococcus test positive [None]
  - Pulmonary oedema [None]
  - Atelectasis [None]
  - Febrile neutropenia [None]
  - Hypotension [None]

NARRATIVE: CASE EVENT DATE: 20161123
